FAERS Safety Report 15023837 (Version 2)
Quarter: 2018Q4

REPORT INFORMATION
  Report Type: Spontaneous
  Country: FR (occurrence: FR)
  Receive Date: 20180618
  Receipt Date: 20181113
  Transmission Date: 20190204
  Serious: Yes (Other)
  Sender: FDA-Public Use
  Company Number: FR-MYLANLABS-2018M1040651

PATIENT
  Age: 67 Year
  Sex: Male
  Weight: 102 kg

DRUGS (1)
  1. BUPIVACAINE MYLAN [Suspect]
     Active Substance: BUPIVACAINE
     Indication: SPINAL ANAESTHESIA
     Dosage: 15 MG, TOTAL
     Route: 037
     Dates: start: 20180228, end: 20180228

REACTIONS (1)
  - Drug ineffective [Recovered/Resolved]

NARRATIVE: CASE EVENT DATE: 20180228
